FAERS Safety Report 5876242-5 (Version None)
Quarter: 2008Q3

REPORT INFORMATION
  Report Type: 
  Country: None (occurrence: None)
  Receive Date: 20080910
  Receipt Date: 20080829
  Transmission Date: 20090109
  Serious: Yes (Other)
  Sender: FDA-Public Use
  Company Number: JP-BAYER-200812011BYL

PATIENT
  Age: 53 Year
  Sex: Female
  Weight: 51 kg

DRUGS (11)
  1. NEXAVAR [Suspect]
     Indication: RENAL CELL CARCINOMA STAGE IV
     Dosage: UNIT DOSE: 200 MG
     Route: 048
  2. NEXAVAR [Suspect]
     Dosage: UNIT DOSE: 200 MG
     Route: 048
     Dates: start: 20080609, end: 20080616
  3. NEXAVAR [Suspect]
     Dosage: TOTAL DAILY DOSE: 800 MG  UNIT DOSE: 200 MG
     Route: 048
     Dates: start: 20080521, end: 20080528
  4. OXYCONTIN [Concomitant]
     Indication: CANCER PAIN
     Route: 048
     Dates: start: 20070115
  5. GASTER D [Concomitant]
     Route: 048
     Dates: start: 20060426
  6. FERROMIA [Concomitant]
     Route: 048
     Dates: start: 20070928
  7. MAGMITT [Concomitant]
     Route: 048
     Dates: start: 20060426
  8. MUCOSTA [Concomitant]
     Route: 048
     Dates: start: 20060426
  9. SOLANAX [Concomitant]
     Route: 048
     Dates: start: 20070714
  10. ZOMETA [Concomitant]
     Indication: RENAL CELL CARCINOMA STAGE IV
     Route: 042
     Dates: start: 20060509
  11. TS-1 [Concomitant]
     Route: 065

REACTIONS (7)
  - ALOPECIA [None]
  - FEBRILE NEUTROPENIA [None]
  - FLUSHING [None]
  - HYPOPHOSPHATAEMIA [None]
  - PLATELET COUNT DECREASED [None]
  - RASH [None]
  - WHITE BLOOD CELL COUNT DECREASED [None]
